FAERS Safety Report 6310227-X (Version None)
Quarter: 2009Q3

REPORT INFORMATION
  Report Type: 
  Country: None (occurrence: None)
  Receive Date: 20090814
  Receipt Date: 20090812
  Transmission Date: 20100115
  Serious: Yes (Hospitalization, Other)
  Sender: FDA-Public Use
  Company Number: JP-BRISTOL-MYERS SQUIBB COMPANY-14691695

PATIENT
  Age: 49 Year
  Sex: Male

DRUGS (7)
  1. EFAVIRENZ [Suspect]
     Indication: HIV INFECTION
     Route: 048
     Dates: start: 20011208
  2. EPIVIR [Suspect]
     Indication: HIV INFECTION
     Dosage: TABS 150MG BID:08DEC01-02JUL04:938DAY 300MG/D:03JUL04
     Route: 048
     Dates: start: 20011208
  3. VIREAD [Suspect]
     Indication: HIV INFECTION
     Dosage: TABS
     Route: 048
     Dates: start: 20040703
  4. KELNAC [Concomitant]
  5. FERROMIA [Concomitant]
     Dates: start: 20070425, end: 20070803
  6. URSO 250 [Concomitant]
  7. VITAMEDIN [Concomitant]

REACTIONS (3)
  - GLAUCOMA [None]
  - GLAUCOMATOCYCLITIC CRISES [None]
  - HELICOBACTER INFECTION [None]
